FAERS Safety Report 10404183 (Version 1)
Quarter: 2014Q1

REPORT INFORMATION
  Report Type: Spontaneous
  Country: US (occurrence: None)
  Receive Date: 20131226
  Receipt Date: 20131226
  Transmission Date: 20141002
  Serious: Yes (Other)
  Sender: FDA-Public Use
  Company Number: PHEH2012US003795

PATIENT
  Age: 68 Year
  Sex: Female
  Weight: 66.2 kg

DRUGS (20)
  1. AFINITOR (RAD) TABLET, 10MG [Suspect]
     Route: 048
     Dates: start: 20120115
  2. FUROSEMIDE (FUROSEMIDE) [Concomitant]
  3. CLARINEX (LORATADINE, PSEUDOEPHEDRINE SULFATE) [Concomitant]
  4. ENALAPRIL [Concomitant]
  5. TRAMADOL HYDROCHLORIDE [Concomitant]
  6. LOVASTATIN [Concomitant]
  7. VITAMIN E (TOCOPHEROL) [Concomitant]
  8. PLAVIX (CLOPIDOGREL SULFATE) [Concomitant]
  9. BYSTOLIC (NEBIVOLOL HYDROCHLORIDE) [Concomitant]
  10. MUCINEX D (GUAIFENESIN, PSEUDOEPHEDRINE HYDROCHLORIDE) [Concomitant]
  11. ARGININE [Concomitant]
  12. VITAMIN A (RETINOL) [Concomitant]
  13. COQ10 (UBIDERCARENONE) [Concomitant]
  14. CALCIUM [Concomitant]
  15. VITAMIN C (ASCORBIC ACID) [Concomitant]
  16. TETANUS ANTITOXIN [Concomitant]
  17. OMEGA (CARBINOXAMINE MALEATE) [Concomitant]
  18. B COMPLEX (NICOTINAMIDE, PYRIDOXINE HYDROCHLORIDE, RIBOFLAVIN, THIAMINE HYDROCHLORIDE) [Concomitant]
  19. VITAMIN D3 (COLECALCIFEROL) [Concomitant]
  20. ASA (ACETYLSALICYLIC ACID) [Concomitant]

REACTIONS (3)
  - Kidney infection [None]
  - Dysuria [None]
  - Pollakiuria [None]
